FAERS Safety Report 18141292 (Version 1)
Quarter: 2020Q3

REPORT INFORMATION
  Report Type: Report from Study
  Country: HN (occurrence: HN)
  Receive Date: 20200812
  Receipt Date: 20200812
  Transmission Date: 20201103
  Serious: Yes (Hospitalization)
  Sender: FDA-Public Use
  Company Number: NVSC2020HN220748

PATIENT
  Age: 56 Year
  Sex: Male

DRUGS (1)
  1. VYMADA [Suspect]
     Active Substance: SACUBITRIL\VALSARTAN
     Indication: PRODUCT USED FOR UNKNOWN INDICATION
     Dosage: 50 MG
     Route: 065
     Dates: start: 201910

REACTIONS (5)
  - Fluid retention [Unknown]
  - Blood pressure abnormal [Unknown]
  - Swelling [Unknown]
  - Cardiac disorder [Unknown]
  - Illness [Unknown]
